FAERS Safety Report 5588506-3 (Version None)
Quarter: 2008Q1

REPORT INFORMATION
  Report Type: 
  Country: None (occurrence: None)
  Receive Date: 20080111
  Receipt Date: 20080103
  Transmission Date: 20080703
  Serious: Yes (Hospitalization)
  Sender: FDA-Public Use
  Company Number: GB-ROCHE-539606

PATIENT
  Age: 69 Year
  Sex: Male
  Weight: 112.4 kg

DRUGS (5)
  1. ORLISTAT [Suspect]
     Indication: OBESITY
     Route: 048
     Dates: start: 20070521
  2. SIMVASTATIN [Concomitant]
     Dosage: DRUG REPORTED AS SIMVOSTATIN.
     Route: 048
  3. COD LIVER OIL [Concomitant]
     Route: 048
  4. MULTI-VITAMIN [Concomitant]
     Indication: VITAMIN SUPPLEMENTATION
     Route: 048
  5. ASPIRIN [Concomitant]
     Route: 048

REACTIONS (2)
  - CHEST PAIN [None]
  - THROMBOSIS [None]
